FAERS Safety Report 6091338-3 (Version None)
Quarter: 2009Q1

REPORT INFORMATION
  Report Type: 
  Country: None (occurrence: None)
  Receive Date: 20090220
  Receipt Date: 20090220
  Transmission Date: 20090719
  Serious: Yes (Hospitalization, Other)
  Sender: FDA-Public Use
  Company Number: None

PATIENT
  Age: 47 Year
  Sex: Male
  Weight: 97.5234 kg

DRUGS (1)
  1. ABILIFY [Suspect]
     Indication: BIPOLAR DISORDER
     Dosage: 30 MG DAILY PO
     Route: 048
     Dates: start: 20050420, end: 20090218

REACTIONS (2)
  - BLOOD GLUCOSE DECREASED [None]
  - MIDDLE INSOMNIA [None]
